FAERS Safety Report 4378627-5 (Version None)
Quarter: 2004Q2

REPORT INFORMATION
  Report Type: 
  Country: None (occurrence: None)
  Receive Date: 20040610
  Receipt Date: 20040525
  Transmission Date: 20050107
  Serious: Yes (Hospitalization)
  Sender: FDA-Public Use
  Company Number: 2004EU001077

PATIENT
  Age: 58 Year
  Sex: Male

DRUGS (5)
  1. PROTOPIC [Suspect]
     Indication: DERMATITIS ATOPIC
     Dosage: 0.03%
     Dates: start: 20040305, end: 20040321
  2. PROTOPIC [Suspect]
     Indication: DERMATITIS ATOPIC
     Dosage: 0.03%
     Dates: start: 20030909
  3. VOLTAREN [Suspect]
     Dosage: 50.00 MG, UID/QD, ORAL
     Route: 048
     Dates: start: 20040312
  4. DI-ANTALVIC(PARACETAMOL, DEXTROPROPOXYPHENE HYDROCHLORIDE) [Suspect]
     Dosage: D, ORAL
     Route: 048
     Dates: start: 20040312
  5. ORBENIN CAP [Concomitant]

REACTIONS (3)
  - ARM AMPUTATION [None]
  - NECROTISING FASCIITIS [None]
  - STREPTOCOCCAL SEPSIS [None]
